FAERS Safety Report 8141181-6 (Version None)
Quarter: 2012Q1

REPORT INFORMATION
  Report Type: 
  Country: None (occurrence: None)
  Receive Date: 20120213
  Receipt Date: 20120124
  Transmission Date: 20120608
  Serious: Yes (Other)
  Sender: FDA-Public Use
  Company Number: 2012BN000023

PATIENT
  Age: 13 Month
  Sex: Female

DRUGS (3)
  1. MELPHALAN HYDROCHLORIDE [Suspect]
     Indication: RETINOBLASTOMA UNILATERAL
     Dosage: 5 MG; ;IART
     Route: 013
  2. ASPIRIN [Concomitant]
  3. HEPARIN [Concomitant]

REACTIONS (4)
  - OCULAR NEOPLASM [None]
  - EYELID PTOSIS [None]
  - RETINAL PIGMENT EPITHELIOPATHY [None]
  - EYELID OEDEMA [None]
